FAERS Safety Report 15213597 (Version 3)
Quarter: 2022Q1

REPORT INFORMATION
  Report Type: Spontaneous
  Country: DE (occurrence: DE)
  Receive Date: 20180730
  Receipt Date: 20220124
  Transmission Date: 20220423
  Serious: Yes (Hospitalization, Other)
  Sender: FDA-Public Use
  Company Number: DE-AUROBINDO-AUR-APL-2018-038876

PATIENT
  Age: 58 Year
  Sex: Female

DRUGS (9)
  1. CITALOPRAM [Suspect]
     Active Substance: CITALOPRAM HYDROBROMIDE
     Indication: Product used for unknown indication
     Dosage: 10 MILLIGRAM, ONCE A DAY (IN MORNING)
     Route: 065
  2. ONDANSETRON [Suspect]
     Active Substance: ONDANSETRON
     Indication: Product used for unknown indication
     Dosage: 8 MILLIGRAM, ONCE A DAY (4 MG, BID MORNING, EVENING)
     Route: 065
  3. BETHANECHOL [Suspect]
     Active Substance: BETHANECHOL
     Indication: Product used for unknown indication
     Dosage: 75 MILLIGRAM, ONCE A DAY (25MG TID(MORNING, AFTERNOON, EVENING)
     Route: 065
  4. DOMPERIDONE MALEATE [Suspect]
     Active Substance: DOMPERIDONE MALEATE
     Indication: Product used for unknown indication
     Dosage: 45 MILLILITER, ONCE A DAY (15 MG, 3X PER DAY)
     Route: 065
  5. DOMPERIDONE MALEATE [Suspect]
     Active Substance: DOMPERIDONE MALEATE
     Dosage: 30 MILLIGRAM, ONCE A DAY (10 MG, 3X PER DAY 1.5ML)
     Route: 065
  6. METOPROLOL [Suspect]
     Active Substance: METOPROLOL
     Indication: Product used for unknown indication
     Dosage: 3 DOSAGE FORM, ONCE A DAY (1.5 DF, 2X PER DAY)
     Route: 065
  7. METOPROLOL [Suspect]
     Active Substance: METOPROLOL
     Dosage: 1.5 DOSAGE FORM, ONCE A DAY
     Route: 065
  8. METOPROLOL [Suspect]
     Active Substance: METOPROLOL
     Dosage: 2 UNK, PER DAY
     Route: 065
  9. RANITIDINE HYDROCHLORIDE [Suspect]
     Active Substance: RANITIDINE HYDROCHLORIDE
     Indication: Product used for unknown indication
     Dosage: 0.5 DOSAGE FORM, DAILY
     Route: 065

REACTIONS (3)
  - Peritonitis [Unknown]
  - Off label use [Unknown]
  - Medication error [Unknown]
